FAERS Safety Report 5609153-0 (Version None)
Quarter: 2008Q1

REPORT INFORMATION
  Report Type: 
  Country: None (occurrence: None)
  Receive Date: 20080130
  Receipt Date: 20080130
  Transmission Date: 20080703
  Serious: Yes (Hospitalization)
  Sender: FDA-Public Use
  Company Number: None

PATIENT
  Age: 20 Year
  Sex: Female
  Weight: 60 kg

DRUGS (1)
  1. LITHOBID [Suspect]
     Indication: BIPOLAR DISORDER
     Dosage: 600MG PO AM + 900 MG PO HS
     Route: 048

REACTIONS (5)
  - ANTIPSYCHOTIC DRUG LEVEL ABOVE THERAPEUTIC [None]
  - ATAXIA [None]
  - LETHARGY [None]
  - NYSTAGMUS [None]
  - SYNCOPE [None]
